FAERS Safety Report 4342900-7 (Version None)
Quarter: 2004Q1

REPORT INFORMATION
  Report Type: 
  Country: None (occurrence: None)
  Receive Date: 20040325
  Receipt Date: 20040205
  Transmission Date: 20041129
  Serious: No
  Sender: FDA-Public Use
  Company Number: USA040258681

PATIENT
  Age: 68 Year
  Sex: Male

DRUGS (1)
  1. FORTEO [Suspect]
     Indication: OSTEOPOROSIS
     Dosage: 20 UG/DAY
     Dates: start: 20040115

REACTIONS (5)
  - ARTHRALGIA [None]
  - BONE PAIN [None]
  - INFLUENZA LIKE ILLNESS [None]
  - JOINT SWELLING [None]
  - OEDEMA PERIPHERAL [None]
